FAERS Safety Report 25691861 (Version 1)
Quarter: 2025Q3

REPORT INFORMATION
  Report Type: Spontaneous
  Country: EU (occurrence: EU)
  Receive Date: 20250818
  Receipt Date: 20250818
  Transmission Date: 20251020
  Serious: Yes (Disabling)
  Sender: BAUSCH AND LOMB
  Company Number: EU-BIOGARAN-B25000931

PATIENT
  Age: 76 Year

DRUGS (1)
  1. ACYCLOVIR [Suspect]
     Active Substance: ACYCLOVIR
     Indication: Oral herpes
     Route: 065

REACTIONS (1)
  - Fatigue [Unknown]
